FAERS Safety Report 10342165 (Version 1)
Quarter: 2014Q3

REPORT INFORMATION
  Report Type: Spontaneous
  Country: US (occurrence: None)
  Receive Date: 20140724
  Receipt Date: 20140724
  Transmission Date: 20150326
  Serious: Yes (Life-Threatening, Hospitalization)
  Sender: FDA-Public Use
  Company Number: None

PATIENT
  Age: 9 Year
  Sex: Female
  Weight: 39.01 kg

DRUGS (1)
  1. ISONIAZID 300 MG X3 ONCE A WEEK UDL ROCKFORD UM36 [Suspect]
     Active Substance: ISONIAZID
     Indication: TUBERCULOSIS
     Route: 048
     Dates: start: 20130325, end: 20130428

REACTIONS (5)
  - Fatigue [None]
  - Abdominal pain [None]
  - Decreased appetite [None]
  - Headache [None]
  - Jaundice [None]

NARRATIVE: CASE EVENT DATE: 20130429
